FAERS Safety Report 6726273-8 (Version None)
Quarter: 2010Q2

REPORT INFORMATION
  Report Type: 
  Country: None (occurrence: None)
  Receive Date: 20100514
  Receipt Date: 20100506
  Transmission Date: 20101027
  Serious: Yes (Other)
  Sender: FDA-Public Use
  Company Number: A0858536A

PATIENT
  Age: 71 Year
  Sex: Male

DRUGS (23)
  1. SORIATANE [Suspect]
     Indication: PSORIASIS
     Dosage: 25MG PER DAY
     Route: 048
     Dates: start: 20050101
  2. APIDRA [Concomitant]
  3. LANTUS [Concomitant]
  4. CLONIDINE [Concomitant]
  5. SIMVASTATIN [Concomitant]
  6. LEFLUNOMIDE [Concomitant]
  7. PREDNISONE [Concomitant]
  8. FUROSEMIDE [Concomitant]
  9. ZEMPLAR [Concomitant]
  10. TRAVATAN [Concomitant]
  11. AMLODIPINE [Concomitant]
  12. CITALOPRAM [Concomitant]
  13. EFFEXOR XR [Concomitant]
  14. HYDROXYZINE [Concomitant]
  15. LABETALOL HCL [Concomitant]
  16. PLAVIX [Concomitant]
  17. ZOLPIDEM [Concomitant]
  18. ASPIRIN [Concomitant]
  19. LOVAZA [Concomitant]
  20. FOLIC ACID [Concomitant]
  21. IRON [Concomitant]
  22. TUMS [Concomitant]
  23. VACCINE [Concomitant]

REACTIONS (5)
  - ABDOMINAL DISTENSION [None]
  - CARDIAC FAILURE CONGESTIVE [None]
  - DYSPNOEA [None]
  - FLUID RETENTION [None]
  - OEDEMA PERIPHERAL [None]
